FAERS Safety Report 10355310 (Version 2)
Quarter: 2014Q3

REPORT INFORMATION
  Report Type: Report from Study
  Country: CA (occurrence: CA)
  Receive Date: 20140731
  Receipt Date: 20140731
  Transmission Date: 20150326
  Serious: Yes (Hospitalization, Other)
  Sender: FDA-Public Use
  Company Number: CA-JNJFOC-20140602605

PATIENT
  Age: 69 Year
  Sex: Female
  Weight: 86.3 kg

DRUGS (3)
  1. REMICADE [Suspect]
     Active Substance: INFLIXIMAB
     Indication: RHEUMATOID ARTHRITIS
     Route: 042
     Dates: start: 201402
  2. REMICADE [Suspect]
     Active Substance: INFLIXIMAB
     Indication: RHEUMATOID ARTHRITIS
     Route: 042
     Dates: start: 20140716
  3. REMICADE [Suspect]
     Active Substance: INFLIXIMAB
     Indication: RHEUMATOID ARTHRITIS
     Route: 042
     Dates: start: 20130627

REACTIONS (4)
  - Intestinal resection [Recovered/Resolved]
  - Investigation [Recovered/Resolved]
  - Staphylococcal infection [Recovered/Resolved]
  - Colostomy [Recovered/Resolved]

NARRATIVE: CASE EVENT DATE: 20140326
